FAERS Safety Report 8430888-9 (Version None)
Quarter: 2012Q2

REPORT INFORMATION
  Report Type: 
  Country: None (occurrence: None)
  Receive Date: 20120323
  Receipt Date: 20111205
  Transmission Date: 20120825
  Serious: Yes (Other)
  Sender: FDA-Public Use
  Company Number: 163-21880-11083511

PATIENT
  Age: 52 Year
  Sex: Female
  Weight: 91.5 kg

DRUGS (9)
  1. REVLIMID [Suspect]
     Indication: MYELODYSPLASTIC SYNDROME
     Dosage: 5 MG, 1 IN 2 D, PO; 5 MG, 1 IN 1 D, PO
     Route: 048
     Dates: start: 20110921
  2. REVLIMID [Suspect]
     Indication: MYELODYSPLASTIC SYNDROME
     Dosage: 5 MG, 1 IN 2 D, PO; 5 MG, 1 IN 1 D, PO
     Route: 048
     Dates: start: 20110804, end: 20110905
  3. GABAPENTIN [Concomitant]
  4. DABIGATRAN (DABIGATRAN) (UNKNOWN) [Concomitant]
  5. CLONAZEPAM [Concomitant]
  6. PREMARIN [Concomitant]
  7. CYMBALTA [Concomitant]
  8. ONDANSETRON (ONDANSETRON) (UNKNOWN) [Concomitant]
  9. NEXIUM [Concomitant]

REACTIONS (3)
  - NEUTROPHIL COUNT DECREASED [None]
  - WHITE BLOOD CELL COUNT DECREASED [None]
  - PLATELET COUNT DECREASED [None]
